FAERS Safety Report 17894871 (Version 3)
Quarter: 2021Q1

REPORT INFORMATION
  Report Type: Spontaneous
  Country: US (occurrence: US)
  Receive Date: 20200615
  Receipt Date: 20210330
  Transmission Date: 20210419
  Serious: Yes (Hospitalization)
  Sender: FDA-Public Use
  Company Number: US-SA-2020SA152874

PATIENT
  Age: 54 Year
  Sex: Female

DRUGS (9)
  1. NOVOLOG [Concomitant]
     Active Substance: INSULIN ASPART
  2. ONE TOUCH [Concomitant]
     Active Substance: DEXTROSE
  3. INSULIN [Concomitant]
     Active Substance: INSULIN NOS
  4. BASAGLAR [Concomitant]
     Active Substance: INSULIN GLARGINE
  5. DICYCLOMINE [Concomitant]
     Active Substance: DICYCLOMINE HYDROCHLORIDE
  6. DUPIXENT [Suspect]
     Active Substance: DUPILUMAB
     Indication: ASTHMA
     Dosage: 300 MG, 1X
     Route: 058
     Dates: start: 20200601, end: 20200601
  7. DUPIXENT [Suspect]
     Active Substance: DUPILUMAB
     Indication: IDIOPATHIC PULMONARY FIBROSIS
     Dosage: 300 MG, QOW
     Route: 058
  8. BUDESONIDE. [Concomitant]
     Active Substance: BUDESONIDE
  9. ZINC SULFATE. [Concomitant]
     Active Substance: ZINC SULFATE

REACTIONS (4)
  - Incorrect dose administered [Unknown]
  - Product dose omission issue [Unknown]
  - COVID-19 [Unknown]
  - Product use in unapproved indication [Unknown]

NARRATIVE: CASE EVENT DATE: 20200601
